FAERS Safety Report 6877816-5 (Version None)
Quarter: 2010Q3

REPORT INFORMATION
  Report Type: 
  Country: None (occurrence: None)
  Receive Date: 20100727
  Receipt Date: 20070702
  Transmission Date: 20110219
  Serious: Yes (Hospitalization, Other)
  Sender: FDA-Public Use
  Company Number: US-PFIZER INC-2006117741

PATIENT
  Sex: Male
  Weight: 111.1 kg

DRUGS (2)
  1. CELEBREX [Suspect]
     Indication: BACK PAIN
     Route: 048
     Dates: start: 20041108
  2. VIOXX [Suspect]
     Indication: BACK PAIN
     Dosage: FREQUENCY: 1-2X
     Route: 048
     Dates: start: 20010515, end: 20040920

REACTIONS (1)
  - MYOCARDIAL INFARCTION [None]
